FAERS Safety Report 7248123-6 (Version None)
Quarter: 2011Q1

REPORT INFORMATION
  Report Type: 
  Country: None (occurrence: None)
  Receive Date: 20110127
  Receipt Date: 20110124
  Transmission Date: 20110831
  Serious: Yes (Hospitalization)
  Sender: FDA-Public Use
  Company Number: US-B.I. PHARMACEUTICALS,INC./RIDGEFIELD-2010-BP-14557BP

PATIENT
  Sex: Female

DRUGS (13)
  1. LUNESTA [Concomitant]
     Dosage: 3 MG
  2. OSCAL D [Concomitant]
  3. ASCORBIC ACID [Concomitant]
     Dosage: 1000 MG
  4. ZOCOR [Concomitant]
     Dosage: 20 MG
  5. ASPIRIN [Concomitant]
     Dosage: 81 MG
  6. ALDACTONE [Concomitant]
     Dosage: 25 MG
  7. COUMADIN [Concomitant]
     Dosage: 2.5 TO 5.0MG
  8. CYMBALTA [Concomitant]
     Dosage: 60 MG
  9. FUROSEMIDE [Concomitant]
     Dosage: 20 MG
  10. OSTEO BIFLEX [Concomitant]
  11. PRADAXA [Suspect]
     Indication: ATRIAL FIBRILLATION
     Dosage: 300 MG
     Route: 048
     Dates: start: 20101202, end: 20101204
  12. COREG [Concomitant]
     Dosage: 25 MG
  13. VITAMIN D [Concomitant]
     Dosage: 1000 U

REACTIONS (3)
  - TONGUE HAEMATOMA [None]
  - GINGIVAL BLEEDING [None]
  - RECTAL HAEMORRHAGE [None]
